FAERS Safety Report 4437576-4 (Version None)
Quarter: 2004Q3

REPORT INFORMATION
  Report Type: 
  Country: None (occurrence: None)
  Receive Date: 20040827
  Receipt Date: 20040819
  Transmission Date: 20050211
  Serious: Yes (Hospitalization)
  Sender: FDA-Public Use
  Company Number: 2004229589FR

PATIENT
  Age: 85 Year
  Sex: Female

DRUGS (5)
  1. ALDACTONE [Suspect]
     Indication: CARDIAC FAILURE
     Dosage: ORAL
     Route: 048
     Dates: end: 20040608
  2. DIGOXIN [Suspect]
     Indication: ATRIAL FIBRILLATION
     Dosage: ORAL
     Route: 048
     Dates: end: 20040608
  3. PLAVIX [Suspect]
     Indication: PROPHYLAXIS
     Dosage: ORAL
     Route: 048
     Dates: end: 20040608
  4. LASIX [Concomitant]
  5. INSULATARD NPH HUMAN [Concomitant]

REACTIONS (4)
  - ASTHENIA [None]
  - CYTOLYTIC HEPATITIS [None]
  - HEPATIC FAILURE [None]
  - PYREXIA [None]
